FAERS Safety Report 10365933 (Version 2)
Quarter: 2014Q3

REPORT INFORMATION
  Report Type: Spontaneous
  Country: CA (occurrence: CA)
  Receive Date: 20140806
  Receipt Date: 20140808
  Transmission Date: 20150326
  Serious: Yes (Life-Threatening, Other)
  Sender: FDA-Public Use
  Company Number: CA-TEVA-495996USA

PATIENT
  Age: 60 Year

DRUGS (3)
  1. TRETINOIN. [Concomitant]
     Active Substance: TRETINOIN
     Route: 048
  2. NICOTINE. [Suspect]
     Active Substance: NICOTINE
     Indication: TOBACCO USER
     Dosage: DAILY DOSE AND FREQUENCY NOT REPORTED
     Route: 065
  3. TRISENOX [Suspect]
     Active Substance: ARSENIC TRIOXIDE
     Indication: ACUTE PROMYELOCYTIC LEUKAEMIA
     Dosage: 5 DAYS A WEEK
     Route: 042

REACTIONS (1)
  - Non-small cell lung cancer [Unknown]

NARRATIVE: CASE EVENT DATE: 201404
